FAERS Safety Report 5471336-0 (Version None)
Quarter: 2007Q3

REPORT INFORMATION
  Report Type: 
  Country: None (occurrence: None)
  Receive Date: 20070928
  Receipt Date: 20060816
  Transmission Date: 20080115
  Serious: No
  Sender: FDA-Public Use
  Company Number: US-BRISTOL-MYERS SQUIBB COMPANY-13476908

PATIENT
  Age: 72 Year
  Sex: Male
  Weight: 144 kg

DRUGS (1)
  1. DEFINITY [Suspect]
     Indication: ECHOCARDIOGRAM
     Dosage: DOSAGE: 3/4S OF PERFLUTREN INFUSION (PERFLUTREN DILUTED IN 5CC OF NORMAL SALINE).
     Route: 042

REACTIONS (1)
  - BACK PAIN [None]
